FAERS Safety Report 4710914-0 (Version None)
Quarter: 2005Q2

REPORT INFORMATION
  Report Type: 
  Country: None (occurrence: None)
  Receive Date: 20050629
  Receipt Date: 20050415
  Transmission Date: 20051028
  Serious: No
  Sender: FDA-Public Use
  Company Number: 04P-163-0257721-00

PATIENT
  Age: 77 Year
  Sex: Female
  Weight: 48.5349 kg

DRUGS (5)
  1. HUMIRA [Suspect]
     Indication: RHEUMATOID ARTHRITIS
     Dosage: 40 MG, 1 IN 2 WK, SUBCUTANEOUS
     Route: 058
     Dates: start: 20040101, end: 20050315
  2. OXAZEPAM [Concomitant]
  3. OXYCOCET [Concomitant]
  4. CENTRUM [Concomitant]
  5. CALCIUM GLUCONATE [Concomitant]

REACTIONS (7)
  - APHTHOUS STOMATITIS [None]
  - BURNING SENSATION [None]
  - EYE IRRITATION [None]
  - EYELID DISORDER [None]
  - EYELID IRRITATION [None]
  - ORAL PAIN [None]
  - SENSORY DISTURBANCE [None]
